FAERS Safety Report 4709219-3 (Version None)
Quarter: 2005Q3

REPORT INFORMATION
  Report Type: 
  Country: None (occurrence: None)
  Receive Date: 20050707
  Receipt Date: 20050707
  Transmission Date: 20060218
  Serious: Yes (Hospitalization, Other)
  Sender: FDA-Public Use
  Company Number: None

PATIENT
  Sex: Male
  Weight: 56 kg

DRUGS (13)
  1. FLUOROURACIL [Suspect]
     Indication: SMALL CELL LUNG CANCER STAGE UNSPECIFIED
     Dates: start: 20050321
  2. CISPLATIN [Suspect]
  3. RADIOTHERAPY [Suspect]
  4. ACETAMINOPHEN [Concomitant]
  5. DESONIDE [Concomitant]
  6. DOCUSATE SODIUM [Concomitant]
  7. DOXYCYCLINE [Concomitant]
  8. HEPARIN SODIUM [Concomitant]
  9. MORPHINE [Concomitant]
  10. RANITIDINE HYDROCHLORIDE [Concomitant]
  11. TERAZOSIN HCL [Concomitant]
  12. VANCOMYCIN [Concomitant]
  13. ZINC OXIDE OINTMENT [Concomitant]

REACTIONS (7)
  - CATHETER RELATED COMPLICATION [None]
  - CELLULITIS [None]
  - DIPHTHERIA [None]
  - HYPONATRAEMIA [None]
  - RADIATION SKIN INJURY [None]
  - SCROTAL DISORDER [None]
  - SOCIAL PROBLEM [None]
